FAERS Safety Report 8997934 (Version 1)
Quarter: 2013Q1

REPORT INFORMATION
  Report Type: Spontaneous
  Country: BR (occurrence: BR)
  Receive Date: 20130104
  Receipt Date: 20130104
  Transmission Date: 20140127
  Serious: Yes (Other)
  Sender: FDA-Public Use
  Company Number: BR-ASTRAZENECA-2012SE96438

PATIENT
  Age: 790 Month
  Sex: Female

DRUGS (2)
  1. NEXIUM [Suspect]
     Indication: GASTRITIS
     Route: 048
  2. NEXIUM [Suspect]
     Indication: GASTRITIS
     Route: 048

REACTIONS (4)
  - Endometriosis [Unknown]
  - Muscle neoplasm [Unknown]
  - Gastritis [Not Recovered/Not Resolved]
  - Drug ineffective [Unknown]
